FAERS Safety Report 14666110 (Version 1)
Quarter: 2018Q1

REPORT INFORMATION
  Report Type: Spontaneous
  Country: US (occurrence: US)
  Receive Date: 20180321
  Receipt Date: 20180321
  Transmission Date: 20180509
  Serious: No
  Sender: FDA-Public Use
  Company Number: None

PATIENT

DRUGS (2)
  1. EMEND [Suspect]
     Active Substance: APREPITANT
  2. ROLAPITANT [Suspect]
     Active Substance: ROLAPITANT

REACTIONS (3)
  - Dyspnoea [None]
  - Infusion related reaction [None]
  - Drug hypersensitivity [None]
